FAERS Safety Report 14401966 (Version 1)
Quarter: 2018Q1

REPORT INFORMATION
  Report Type: Spontaneous
  Country: AU (occurrence: AU)
  Receive Date: 20180117
  Receipt Date: 20180117
  Transmission Date: 20180509
  Serious: Yes (Hospitalization, Other)
  Sender: FDA-Public Use
  Company Number: AU-VISTAPHARM, INC.-VER201712-001477

PATIENT
  Age: 58 Year
  Sex: Female

DRUGS (8)
  1. GABAPENTIN. [Concomitant]
     Active Substance: GABAPENTIN
     Dosage: 800 MG EVERY MORNING OR 400 MG AT MIDDAY OR 800 MG EVERY NIGHT
  2. AMISULPRIDE [Concomitant]
     Active Substance: AMISULPRIDE
  3. ASPIRIN. [Concomitant]
     Active Substance: ASPIRIN
     Indication: CEREBRAL INFARCTION
  4. VALPROIC ACID. [Suspect]
     Active Substance: VALPROIC ACID
     Indication: EPILEPSY
     Dosage: 1000 MG PER DAY, 2 YEARS PRIOR TO THE CURRENT PRESENTATION
  5. VALPROIC ACID. [Suspect]
     Active Substance: VALPROIC ACID
  6. ATORVASTATIN [Suspect]
     Active Substance: ATORVASTATIN
     Indication: PROPHYLAXIS
  7. VALPROIC ACID. [Suspect]
     Active Substance: VALPROIC ACID
     Dosage: REDUCED TO 600 MG PER DAY, 2 YEARS PRIOR TO THE CURRENT PRESENTATION
  8. TOPIRAMATE. [Concomitant]
     Active Substance: TOPIRAMATE

REACTIONS (2)
  - Hyperammonaemic encephalopathy [Recovered/Resolved]
  - Drug interaction [Unknown]
